FAERS Safety Report 4350608-7 (Version None)
Quarter: 2004Q2

REPORT INFORMATION
  Report Type: 
  Country: None (occurrence: None)
  Receive Date: 20040430
  Receipt Date: 20040302
  Transmission Date: 20050107
  Serious: No
  Sender: FDA-Public Use
  Company Number: US-BRISTOL-MYERS SQUIBB COMPANY-12521712

PATIENT
  Sex: Female

DRUGS (3)
  1. PARAPLATIN AQ [Suspect]
     Indication: CARCINOMA
     Route: 042
     Dates: start: 20040301, end: 20040301
  2. BENADRYL [Concomitant]
     Indication: PREMEDICATION
     Route: 042
     Dates: start: 20040301
  3. ZOFRAN [Concomitant]
     Indication: PREMEDICATION
     Route: 042
     Dates: start: 20040301

REACTIONS (2)
  - ERYTHEMA [None]
  - SINUS CONGESTION [None]
